FAERS Safety Report 8168189-9 (Version None)
Quarter: 2012Q1

REPORT INFORMATION
  Report Type: 
  Country: None (occurrence: None)
  Receive Date: 20120227
  Receipt Date: 20120215
  Transmission Date: 20120608
  Serious: Yes (Other)
  Sender: FDA-Public Use
  Company Number: US-SANOFI-AVENTIS-2012SA010334

PATIENT
  Age: 69 Year
  Sex: Male
  Weight: 77.11 kg

DRUGS (15)
  1. MAGNESIUM [Concomitant]
  2. COUMADIN [Suspect]
     Dates: start: 20110101
  3. TIKOSYN [Suspect]
     Indication: ATRIAL FIBRILLATION
     Route: 048
     Dates: start: 20110101
  4. ASCORBIC ACID [Concomitant]
  5. JANUVIA [Concomitant]
  6. MULTI-VITAMINS [Concomitant]
  7. PLAVIX [Suspect]
     Route: 048
     Dates: start: 20110101
  8. PRILOSEC [Concomitant]
  9. EXTRA STRENGTH TYLENOL [Concomitant]
  10. LISINOPRIL [Concomitant]
  11. ASPIRIN [Suspect]
  12. POTASSIUM CHLORIDE [Concomitant]
  13. IRON [Concomitant]
  14. METOPROLOL TARTRATE [Concomitant]
  15. ATORVASTATIN [Concomitant]

REACTIONS (2)
  - MOUTH HAEMORRHAGE [None]
  - ARTERIAL OCCLUSIVE DISEASE [None]
